FAERS Safety Report 6841600-9 (Version None)
Quarter: 2010Q3

REPORT INFORMATION
  Report Type: 
  Country: None (occurrence: None)
  Receive Date: 20100714
  Receipt Date: 20081009
  Transmission Date: 20110219
  Serious: No
  Sender: FDA-Public Use
  Company Number: US-PFIZER INC-2007054222

PATIENT
  Sex: Female
  Weight: 52.272 kg

DRUGS (6)
  1. CHANTIX [Suspect]
     Indication: SMOKING CESSATION THERAPY
     Route: 048
     Dates: start: 20080601
  2. CHANTIX [Suspect]
     Indication: TOBACCO USER
  3. LIPITOR [Concomitant]
  4. DRUG, UNSPECIFIED [Concomitant]
  5. LISINOPRIL [Concomitant]
  6. HYDROCHLOROTHIAZIDE [Concomitant]

REACTIONS (9)
  - ABNORMAL DREAMS [None]
  - CONSTIPATION [None]
  - DISTURBANCE IN ATTENTION [None]
  - DIZZINESS [None]
  - FLATULENCE [None]
  - INSOMNIA [None]
  - POOR QUALITY SLEEP [None]
  - SLUGGISHNESS [None]
  - THINKING ABNORMAL [None]
